FAERS Safety Report 8261935-5 (Version None)
Quarter: 2012Q2

REPORT INFORMATION
  Report Type: 
  Country: None (occurrence: None)
  Receive Date: 20120405
  Receipt Date: 20120328
  Transmission Date: 20120825
  Serious: Yes (Other)
  Sender: FDA-Public Use
  Company Number: JP-BAYER-2012-004697

PATIENT
  Age: 34 Year
  Sex: Female
  Weight: 67.12 kg

DRUGS (2)
  1. YAZ [Suspect]
     Indication: DYSMENORRHOEA
     Dosage: 1 DF, QD
     Route: 048
     Dates: start: 20120104, end: 20120111
  2. YAZ [Suspect]
     Indication: ENDOMETRIOSIS

REACTIONS (6)
  - POOR QUALITY SLEEP [None]
  - NEURALGIA [None]
  - MUSCULOSKELETAL STIFFNESS [None]
  - THORACIC OUTLET SYNDROME [None]
  - CHEST DISCOMFORT [None]
  - NON-CARDIAC CHEST PAIN [None]
